FAERS Safety Report 8052106-6 (Version None)
Quarter: 2012Q1

REPORT INFORMATION
  Report Type: 
  Country: None (occurrence: None)
  Receive Date: 20120118
  Receipt Date: 20120112
  Transmission Date: 20120608
  Serious: No
  Sender: FDA-Public Use
  Company Number: US-PFIZER INC-2012009484

PATIENT

DRUGS (3)
  1. NEURONTIN [Suspect]
     Dosage: 800 MG, 1(ONE) 2X/DAY
  2. ZOLOFT [Suspect]
     Dosage: 100 MG, 2X/DAY
  3. ABILIFY [Suspect]
     Dosage: UNK

REACTIONS (1)
  - WEIGHT INCREASED [None]
